FAERS Safety Report 21413328 (Version 1)
Quarter: 2022Q4

REPORT INFORMATION
  Report Type: Spontaneous
  Country: US (occurrence: US)
  Receive Date: 20221006
  Receipt Date: 20221006
  Transmission Date: 20230112
  Serious: Yes (Other)
  Sender: FDA-Public Use
  Company Number: US-AMGEN-USASP2022168721

PATIENT
  Sex: Male

DRUGS (1)
  1. BEVACIZUMAB [Suspect]
     Active Substance: BEVACIZUMAB
     Indication: Intracranial meningioma malignant
     Dosage: 10 MILLIGRAM/KILOGRAM, Q2WK
     Route: 040

REACTIONS (3)
  - Intracranial meningioma malignant [Unknown]
  - Treatment failure [Unknown]
  - Off label use [Unknown]
